FAERS Safety Report 10156776 (Version 1)
Quarter: 2014Q2

REPORT INFORMATION
  Report Type: Spontaneous
  Country: CH (occurrence: None)
  Receive Date: 20140505
  Receipt Date: 20140505
  Transmission Date: 20141212
  Serious: Yes (Hospitalization)
  Sender: FDA-Public Use
  Company Number: 20140237

PATIENT
  Age: 42 Year
  Sex: Female

DRUGS (2)
  1. FERINJECT (FERRIC CARBOXYMALTOSE - VIFOR) [Suspect]
     Indication: IRON DEFICIENCY ANAEMIA
     Dosage: DOSE UNKNOWN, INTRAVENOUS DRIP??
     Route: 041
     Dates: start: 20111104, end: 2011
  2. VENOFER [Suspect]
     Indication: IRON DEFICIENCY ANAEMIA
     Dosage: DOSE UNKNOWN, INTRAVENOUS DRIP??
     Route: 041
     Dates: start: 20110901, end: 2011

REACTIONS (3)
  - Pain [None]
  - Musculoskeletal pain [None]
  - Haemosiderosis [None]
